FAERS Safety Report 8980153 (Version 1)
Quarter: 2012Q4

REPORT INFORMATION
  Report Type: 
  Country: ES (occurrence: ES)
  Receive Date: 20121221
  Receipt Date: 20121221
  Transmission Date: 20130627
  Serious: Yes (Other)
  Sender: FDA-Public Use
  Company Number: PHHY2012ES117067

PATIENT
  Age: 36 Year
  Sex: Female

DRUGS (1)
  1. TIMOLOL [Suspect]
     Indication: DEVELOPMENTAL GLAUCOMA

REACTIONS (4)
  - Visual acuity reduced [Unknown]
  - Intraocular pressure increased [Recovered/Resolved]
  - Premature delivery [Unknown]
  - Maternal exposure during pregnancy [Unknown]
